FAERS Safety Report 4393518-1 (Version None)
Quarter: 2004Q3

REPORT INFORMATION
  Report Type: 
  Country: None (occurrence: None)
  Receive Date: 20040701
  Receipt Date: 20040624
  Transmission Date: 20050211
  Serious: Yes (Hospitalization)
  Sender: FDA-Public Use
  Company Number: 200410427BNE

PATIENT
  Age: 76 Year
  Sex: Male

DRUGS (6)
  1. ASPIRIN [Suspect]
     Indication: PROPHYLAXIS
     Dosage: ORAL
     Route: 048
     Dates: start: 20011031, end: 20040609
  2. ASPIRIN [Suspect]
     Indication: STENT PLACEMENT
     Dosage: ORAL
     Route: 048
     Dates: start: 20011031, end: 20040609
  3. AZAPROPAZONE [Suspect]
     Indication: BACK PAIN
     Dosage: QD, ORAL
     Route: 048
     Dates: start: 20030101, end: 20031201
  4. CLOPIDOGREL [Concomitant]
  5. BISOPROLOL FUMARATE [Concomitant]
  6. AMLODIPINE [Concomitant]

REACTIONS (2)
  - HAEMATEMESIS [None]
  - OESOPHAGITIS [None]
